FAERS Safety Report 6765645-2 (Version None)
Quarter: 2010Q2

REPORT INFORMATION
  Report Type: 
  Country: None (occurrence: None)
  Receive Date: 20100611
  Receipt Date: 20100601
  Transmission Date: 20101027
  Serious: Yes (Death)
  Sender: FDA-Public Use
  Company Number: JP-PFIZER INC-2010060226

PATIENT
  Age: 64 Year
  Sex: Female
  Weight: 30 kg

DRUGS (21)
  1. RIFABUTIN [Suspect]
     Indication: MYCOBACTERIUM AVIUM COMPLEX INFECTION
     Dosage: 150 MG, 1X/DAY
     Route: 048
     Dates: start: 20090617, end: 20090622
  2. RIFABUTIN [Suspect]
     Dosage: 100 MG, ALTERNATE DAY
     Route: 048
     Dates: start: 20090708, end: 20090714
  3. RIFABUTIN [Suspect]
     Dosage: 150 MG, 1X/DAY
     Route: 048
     Dates: start: 20100125, end: 20100203
  4. KLARICID [Concomitant]
     Indication: MYCOBACTERIUM AVIUM COMPLEX INFECTION
     Dosage: 400 MG, 2X/DAY
     Route: 048
     Dates: end: 20090707
  5. CRAVIT [Concomitant]
     Indication: MYCOBACTERIUM AVIUM COMPLEX INFECTION
     Dosage: 100 MG, 3X/DAY
     Route: 048
     Dates: end: 20100203
  6. AMIKACIN SULFATE [Concomitant]
     Indication: MYCOBACTERIUM AVIUM COMPLEX INFECTION
     Dosage: 250 MG, 3 TIMES WEEKLY
     Route: 042
     Dates: end: 20091201
  7. ZITHROMAX [Concomitant]
     Indication: MYCOBACTERIUM AVIUM COMPLEX INFECTION
     Dosage: 2 G, 1X/DAY
     Route: 048
     Dates: start: 20091228, end: 20091229
  8. OMEPRAL [Concomitant]
     Dosage: 20 MG, 2X/DAY
     Route: 048
     Dates: end: 20100203
  9. LENDORMIN [Concomitant]
     Dosage: 0.25 MG, 1X/DAY
     Route: 048
     Dates: end: 20091210
  10. MYSLEE [Concomitant]
     Dosage: 5 MG, 1X/DAY
     Route: 048
     Dates: start: 20091211, end: 20100128
  11. SILECE [Concomitant]
     Dosage: 0.5 MG, 1X/DAY
     Route: 048
     Dates: start: 20100129, end: 20100203
  12. SLOW-K [Concomitant]
     Dosage: 1200 MG, 2X/DAY
     Route: 048
     Dates: end: 20090709
  13. MAGNESIUM OXIDE [Concomitant]
     Dosage: 0.5 G, 2X/DAY
     Route: 048
     Dates: end: 20100203
  14. CODEINE PHOSPHATE [Concomitant]
     Dosage: 20 MG, 1X/DAY
     Route: 048
     Dates: end: 20090723
  15. DOGMATYL [Concomitant]
     Dosage: 25 MG, 1X/DAY
     Route: 048
     Dates: start: 20100128, end: 20100206
  16. DIGOXIN [Concomitant]
     Dosage: 0.125 MG, 1X/DAY
     Route: 048
     Dates: start: 20081211, end: 20100203
  17. PREDONINE [Concomitant]
     Indication: MYCOBACTERIUM AVIUM COMPLEX INFECTION
     Dosage: 15 MG, 1X/DAY
     Route: 048
     Dates: start: 20100123, end: 20100203
  18. ZOSYN [Concomitant]
     Indication: PNEUMONIA
     Dosage: 4.5 G, 2X/DAY
     Route: 042
     Dates: start: 20091228, end: 20100103
  19. MEROPEN [Concomitant]
     Indication: PNEUMONIA
     Dosage: 0.5 G, 2X/DAY
     Route: 042
     Dates: start: 20100104, end: 20100122
  20. PAZUCROSS [Concomitant]
     Indication: PNEUMONIA
     Dosage: 300 MG, 2X/DAY
     Route: 042
     Dates: start: 20100122, end: 20100203
  21. CEFTAZIDIME [Concomitant]
     Dosage: 1 G, 2X/DAY
     Route: 042
     Dates: start: 20100203, end: 20100208

REACTIONS (1)
  - RESPIRATORY FAILURE [None]
